FAERS Safety Report 18399221 (Version 4)
Quarter: 2022Q1

REPORT INFORMATION
  Report Type: Spontaneous
  Country: DE (occurrence: DE)
  Receive Date: 20201019
  Receipt Date: 20220324
  Transmission Date: 20220423
  Serious: No
  Sender: FDA-Public Use
  Company Number: DE-PFIZER INC-2020390588

PATIENT
  Age: 32 Year
  Sex: Female

DRUGS (1)
  1. MEDROXYPROGESTERONE [Suspect]
     Active Substance: MEDROXYPROGESTERONE
     Indication: Contraception
     Dosage: STRENGTH: 104 MG/ML 0.65 ML

REACTIONS (2)
  - Needle issue [Unknown]
  - Incorrect dose administered [Unknown]
